FAERS Safety Report 21026949 (Version 1)
Quarter: 2022Q2

REPORT INFORMATION
  Report Type: Spontaneous
  Country: US (occurrence: US)
  Receive Date: 20220630
  Receipt Date: 20220630
  Transmission Date: 20220721
  Serious: Yes (Other)
  Sender: FDA-Public Use
  Company Number: US-SA-SAC20220627000952

PATIENT
  Age: 54 Year
  Sex: Male

DRUGS (1)
  1. ZANTAC [Suspect]
     Active Substance: RANITIDINE HYDROCHLORIDE
     Indication: Dyspepsia
     Dosage: 150 MG,FREQUENCY-OTHER
     Route: 065
     Dates: start: 201001, end: 201501

REACTIONS (3)
  - Prostate cancer stage IV [Unknown]
  - Bladder cancer stage IV [Unknown]
  - Abdominal neoplasm [Unknown]

NARRATIVE: CASE EVENT DATE: 20150101
